FAERS Safety Report 12854700 (Version 1)
Quarter: 2016Q4

REPORT INFORMATION
  Report Type: Spontaneous
  Country: US (occurrence: US)
  Receive Date: 20161017
  Receipt Date: 20161017
  Transmission Date: 20170207
  Serious: Yes (Other)
  Sender: FDA-Public Use
  Company Number: US-SA-2016SA187763

PATIENT

DRUGS (1)
  1. ELOXATIN [Suspect]
     Active Substance: OXALIPLATIN
     Route: 065

REACTIONS (2)
  - Facial paralysis [Recovered/Resolved]
  - Peripheral motor neuropathy [Recovered/Resolved]
